FAERS Safety Report 9539185 (Version 1)
Quarter: 2013Q2

REPORT INFORMATION
  Report Type: Spontaneous
  Country: US (occurrence: None)
  Receive Date: 20130507
  Receipt Date: 20130507
  Transmission Date: 20140414
  Serious: No
  Sender: FDA-Public Use
  Company Number: PHEH2013US003085

PATIENT
  Age: 47 Year
  Sex: Female

DRUGS (3)
  1. AFINITOR [Suspect]
     Route: 048
  2. EXEMESTANE (EXEMESTANE) TABLET , 25 MG [Concomitant]
  3. CLONAZEPAM (CLONAZEPAM) TABLET [Concomitant]

REACTIONS (1)
  - Dizziness [None]
